FAERS Safety Report 17724046 (Version 6)
Quarter: 2020Q3

REPORT INFORMATION
  Report Type: Report from Study
  Country: US (occurrence: US)
  Receive Date: 20200429
  Receipt Date: 20200813
  Transmission Date: 20201102
  Serious: Yes (Disabling)
  Sender: FDA-Public Use
  Company Number: NVSC2020US115286

PATIENT
  Sex: Male

DRUGS (1)
  1. ENTRESTO [Suspect]
     Active Substance: SACUBITRIL\VALSARTAN
     Indication: CARDIAC FAILURE
     Dosage: UNK
     Route: 048
     Dates: start: 201911

REACTIONS (10)
  - Dyspnoea exertional [Unknown]
  - Pain in extremity [Unknown]
  - Insomnia [Recovering/Resolving]
  - Dyspepsia [Unknown]
  - Pollakiuria [Unknown]
  - Drug ineffective [Unknown]
  - Cardiac disorder [Unknown]
  - Back pain [Unknown]
  - Weight increased [Unknown]
  - Limb discomfort [Unknown]
